FAERS Safety Report 21247880 (Version 1)
Quarter: 2022Q3

REPORT INFORMATION
  Report Type: Spontaneous
  Country: GB (occurrence: GB)
  Receive Date: 20220824
  Receipt Date: 20220824
  Transmission Date: 20221027
  Serious: Yes (Other)
  Sender: FDA-Public Use
  Company Number: None

PATIENT
  Age: 6 Year
  Sex: Female

DRUGS (2)
  1. MONTELUKAST [Suspect]
     Active Substance: MONTELUKAST SODIUM
     Indication: Product used for unknown indication
     Dosage: UNKNOWN
     Route: 065
  2. MONTELUKAST [Suspect]
     Active Substance: MONTELUKAST SODIUM
     Indication: Asthma
     Dosage: 4TH ONCE A DAY AT NIGHT
     Route: 065
     Dates: start: 20200101, end: 20220809

REACTIONS (2)
  - Product dose omission issue [Unknown]
  - Tic [Not Recovered/Not Resolved]

NARRATIVE: CASE EVENT DATE: 20220707
